FAERS Safety Report 4416752-0 (Version None)
Quarter: 2004Q3

REPORT INFORMATION
  Report Type: 
  Country: None (occurrence: None)
  Receive Date: 20040802
  Receipt Date: 20040714
  Transmission Date: 20050211
  Serious: Yes (Other)
  Sender: FDA-Public Use
  Company Number: 2004-DE-03886GD

PATIENT
  Age: 45 Year
  Sex: Male

DRUGS (2)
  1. CLONIDINE [Suspect]
     Indication: PAIN
     Dosage: 200 MCG (200 MCG) IT
     Route: 038
  2. BUPIVACAINE [Suspect]
     Indication: PAIN
     Dosage: 20 MG (20 MG) IT
     Route: 038

REACTIONS (21)
  - ASTHENIA [None]
  - ATAXIA [None]
  - BACK PAIN [None]
  - CONSTIPATION [None]
  - DRUG EFFECT DECREASED [None]
  - EXTENSOR PLANTAR RESPONSE [None]
  - FALL [None]
  - HYPERREFLEXIA [None]
  - HYPOAESTHESIA [None]
  - LOSS OF PROPRIOCEPTION [None]
  - MEDICAL DEVICE IMPLANTATION [None]
  - MIGRATION OF IMPLANT [None]
  - NEUROTOXICITY [None]
  - ORTHOSTATIC HYPOTENSION [None]
  - PARAESTHESIA [None]
  - PERONEAL NERVE PALSY [None]
  - SENSORY LOSS [None]
  - SPINAL CORD DISORDER [None]
  - SPINAL CORD INJURY [None]
  - SPINAL CORD OEDEMA [None]
  - URINARY RETENTION [None]
